FAERS Safety Report 9182063 (Version 4)
Quarter: 2014Q2

REPORT INFORMATION
  Report Type: Report from Study
  Country: US (occurrence: US)
  Receive Date: 20130322
  Receipt Date: 20140618
  Transmission Date: 20141212
  Serious: Yes (Hospitalization)
  Sender: FDA-Public Use
  Company Number: PHHO2013US004143

PATIENT
  Age: 72 Year
  Sex: Male

DRUGS (19)
  1. AFINITOR [Suspect]
     Indication: LYMPHOMA
     Dosage: 5 MG, QD
     Dates: start: 20130225, end: 20130313
  2. REVLIMID [Suspect]
     Indication: LYMPHOMA
     Dosage: 15 MG, QD
     Dates: start: 20130225, end: 20130313
  3. COREG [Concomitant]
     Dosage: 3.125 MG, BID
  4. GEMFIBROZIL [Concomitant]
     Dosage: 2.5 MG, QD
  5. CRESTOR [Concomitant]
     Dosage: 20 MG, QD
  6. ZETIA [Concomitant]
     Dosage: 10 MG, QD
  7. AVODART [Concomitant]
     Dosage: 0.5 MG, QD
  8. LEVOTHYROXINE [Concomitant]
     Dosage: 88 UG, QD
  9. PREVACID [Concomitant]
     Dosage: 30 MG, QD
  10. GLYBURIDE [Concomitant]
     Dosage: 2.5 MG, QD
  11. ASPIRIN [Concomitant]
     Dosage: 81 MG, QHS
  12. FLORASTOR [Concomitant]
     Dosage: 250 MG, BID
  13. FOLIC ACID [Concomitant]
     Dosage: 0.4 UG, QD
  14. FISH OIL [Concomitant]
     Dosage: 500 MG, QD
  15. CENTRUM SILVER [Concomitant]
     Dosage: UNK
  16. TESSALON [Concomitant]
     Indication: COUGH
     Dosage: 100 MG, Q8H
  17. STOOL SOFTENER [Concomitant]
     Dosage: UNK
  18. SULFACET [Concomitant]
     Dosage: UNK
     Dates: start: 20130313
  19. NORCO [Concomitant]
     Indication: PAIN
     Dosage: 1 DF (10/325 MG), AS NEEDED

REACTIONS (3)
  - Febrile neutropenia [Recovered/Resolved]
  - Sepsis [Recovered/Resolved with Sequelae]
  - White blood cell count decreased [Recovered/Resolved with Sequelae]
